FAERS Safety Report 16126663 (Version 1)
Quarter: 2019Q1

REPORT INFORMATION
  Report Type: Spontaneous
  Country: US (occurrence: US)
  Receive Date: 20190222
  Receipt Date: 20190222
  Transmission Date: 20190418
  Serious: No
  Sender: FDA-Public Use
  Company Number: None

PATIENT
  Age: 27 Year
  Sex: Female

DRUGS (2)
  1. AFINITOR [Concomitant]
     Active Substance: EVEROLIMUS
  2. XALKORI [Suspect]
     Active Substance: CRIZOTINIB
     Route: 048
     Dates: start: 201902

REACTIONS (1)
  - Alopecia [None]

NARRATIVE: CASE EVENT DATE: 20190218
